FAERS Safety Report 9286720 (Version 1)
Quarter: 2013Q2

REPORT INFORMATION
  Report Type: Spontaneous
  Country: GB (occurrence: GB)
  Receive Date: 20130513
  Receipt Date: 20130513
  Transmission Date: 20140414
  Serious: Yes (Other)
  Sender: FDA-Public Use
  Company Number: GB-TEVA-403656ISR

PATIENT
  Age: 76 Year
  Sex: Female

DRUGS (7)
  1. AMITRIPTYLINE [Suspect]
     Indication: INSOMNIA
     Dosage: AT NIGHT
     Route: 048
     Dates: start: 20130117
  2. DIGOXIN [Concomitant]
  3. FUROSEMIDE [Concomitant]
  4. LANSOPRAZOLE [Concomitant]
  5. WARFARIN [Concomitant]
  6. OXYBUTYNIN HYDROCHLORIDE [Concomitant]
  7. SERETIDE [Concomitant]

REACTIONS (2)
  - Bundle branch block left [Recovered/Resolved with Sequelae]
  - Atrial fibrillation [Unknown]
